FAERS Safety Report 4838030-8 (Version None)
Quarter: 2005Q4

REPORT INFORMATION
  Report Type: 
  Country: None (occurrence: None)
  Receive Date: 20051123
  Receipt Date: 20051115
  Transmission Date: 20060501
  Serious: Yes (Hospitalization)
  Sender: FDA-Public Use
  Company Number: 2005-04474

PATIENT
  Age: 79 Year
  Sex: Female

DRUGS (13)
  1. TRAMADOL HCL [Suspect]
     Indication: PROCEDURAL PAIN
     Dosage: 50 MG - 100 MG, Q6H, ORAL
     Route: 048
     Dates: start: 20050101, end: 20050101
  2. PARACETAMOL (PARACETAMOL) [Concomitant]
  3. INDAPAMIDE [Concomitant]
  4. ATENOLOL [Concomitant]
  5. TIAPROFENIC ACID (TIAPROFENIC ACID) [Concomitant]
  6. FENTANYL [Concomitant]
  7. PROPOFOL [Concomitant]
  8. ONDANSETRON [Concomitant]
  9. DEXAMETHASONE [Concomitant]
  10. CYCLIZINE (CYCLIZINE) [Concomitant]
  11. BUPIVACAINE [Concomitant]
  12. DIAMORPHINE (DIAMORPHINE) [Concomitant]
  13. VALSARTAN [Concomitant]

REACTIONS (2)
  - GRAND MAL CONVULSION [None]
  - HYPONATRAEMIA [None]
